FAERS Safety Report 4989547-7 (Version None)
Quarter: 2006Q2

REPORT INFORMATION
  Report Type: 
  Country: None (occurrence: None)
  Receive Date: 20060502
  Receipt Date: 20050829
  Transmission Date: 20061013
  Serious: Yes (Hospitalization)
  Sender: FDA-Public Use
  Company Number: US-MERCK-0508USA04679

PATIENT
  Age: 76 Year
  Sex: Male
  Weight: 75 kg

DRUGS (1)
  1. VIOXX [Suspect]
     Indication: ARTHRITIS
     Route: 048
     Dates: start: 20040101

REACTIONS (5)
  - ARTERIAL INJURY [None]
  - ATRIAL FIBRILLATION [None]
  - CYANOSIS [None]
  - HYDROCELE [None]
  - PERIPHERAL VASCULAR DISORDER [None]
